FAERS Safety Report 10068513 (Version 2)
Quarter: 2014Q2

REPORT INFORMATION
  Report Type: Spontaneous
  Country: GB (occurrence: GB)
  Receive Date: 20140409
  Receipt Date: 20140409
  Transmission Date: 20141212
  Serious: Yes (Life-Threatening, Hospitalization, Disabling, Other)
  Sender: FDA-Public Use
  Company Number: GB-TEVA-462423ISR

PATIENT
  Age: 69 Year
  Sex: Male
  Weight: 74 kg

DRUGS (12)
  1. MIRTAZAPINE [Suspect]
     Indication: DEMENTIA
     Route: 048
     Dates: start: 2012
  2. OLANZAPINE [Suspect]
     Dosage: 10 MILLIGRAM DAILY;
     Route: 048
     Dates: start: 2012
  3. EPILIM [Suspect]
     Indication: MOOD ALTERED
     Dosage: 800 MILLIGRAM DAILY;
     Route: 048
     Dates: start: 2012
  4. CLONAZEPAM [Suspect]
     Indication: AGGRESSION
     Dosage: 1 MILLIGRAM DAILY; AT NIGHT
     Route: 048
     Dates: start: 2012
  5. OMEPRAZOLE [Concomitant]
     Dosage: 40 MILLIGRAM DAILY;
  6. ATORVASTATIN [Concomitant]
     Dosage: 40 MILLIGRAM DAILY;
  7. FYBOGEL [Concomitant]
     Dosage: 1 DOSAGE FORMS DAILY;
  8. ALFUZOSIN HYDROCHLORIDE [Concomitant]
     Dosage: 10 MILLIGRAM DAILY;
  9. ISOSORBIDE MONONITRATE [Concomitant]
     Dosage: 60 MILLIGRAM DAILY;
  10. IVABRADINE [Concomitant]
     Dosage: 10 MILLIGRAM DAILY;
  11. CLOPIDOGREL [Concomitant]
     Dosage: 75 MILLIGRAM DAILY;
  12. ASPIRIN [Concomitant]
     Dosage: 75 MILLIGRAM DAILY;

REACTIONS (2)
  - Hyponatraemia [Not Recovered/Not Resolved]
  - Convulsion [Unknown]
